FAERS Safety Report 8466145-4 (Version None)
Quarter: 2012Q2

REPORT INFORMATION
  Report Type: 
  Country: None (occurrence: None)
  Receive Date: 20120626
  Receipt Date: 20120620
  Transmission Date: 20120825
  Serious: Yes (Death, Other)
  Sender: FDA-Public Use
  Company Number: US-CELGENEUS-163-20785-12063024

PATIENT
  Sex: Male

DRUGS (10)
  1. THALOMID [Suspect]
     Dosage: 100 MILLIGRAM
     Route: 048
     Dates: start: 20101201
  2. ALKERAN [Concomitant]
     Dosage: 4 MILLIGRAM
     Route: 048
  3. WHOLE BLOOD [Concomitant]
     Route: 065
  4. DEXAMETHASONE [Concomitant]
     Dosage: 40 MILLIGRAM
     Route: 041
  5. ACYCLOVIR [Concomitant]
     Dosage: 400 MILLIGRAM
     Route: 065
  6. NEUPOGEN [Concomitant]
     Dosage: 480 MICROGRAM
     Route: 065
  7. PLATELETS [Concomitant]
     Route: 065
  8. THALOMID [Suspect]
     Indication: MULTIPLE MYELOMA
     Dosage: 100 MILLIGRAM
     Route: 048
     Dates: start: 20101001
  9. VELCADE [Concomitant]
     Dosage: 1 MILLIGRAM/SQ. METER
     Route: 041
  10. VORINOSTAT [Concomitant]
     Dosage: 200 MILLIGRAM
     Route: 048

REACTIONS (4)
  - DEATH [None]
  - RENAL DISORDER [None]
  - FULL BLOOD COUNT DECREASED [None]
  - PLATELET COUNT DECREASED [None]
